FAERS Safety Report 4731621-4 (Version None)
Quarter: 2005Q3

REPORT INFORMATION
  Report Type: 
  Country: None (occurrence: None)
  Receive Date: 20050725
  Receipt Date: 20050218
  Transmission Date: 20060218
  Serious: Yes (Hospitalization)
  Sender: FDA-Public Use
  Company Number: WAES 0502USA02420

PATIENT
  Sex: Female

DRUGS (1)
  1. VIOXX [Suspect]
     Dosage: PRN/PO
     Route: 048
     Dates: start: 19991001, end: 20010101

REACTIONS (4)
  - CHEST PAIN [None]
  - GASTRITIS [None]
  - HYPERTENSION [None]
  - IRRITABLE BOWEL SYNDROME [None]
